FAERS Safety Report 8979941 (Version 1)
Quarter: 2012Q4

REPORT INFORMATION
  Report Type: Report from Study
  Country: NL (occurrence: NL)
  Receive Date: 20121221
  Receipt Date: 20121221
  Transmission Date: 20130627
  Serious: Yes (Hospitalization, Other)
  Sender: FDA-Public Use
  Company Number: PHHO2010NL18293

PATIENT
  Age: 17 Year
  Sex: Female
  Weight: 93 kg

DRUGS (9)
  1. ACZ885 [Suspect]
     Indication: JUVENILE ARTHRITIS
     Dosage: 300 mg, UNK
     Route: 058
     Dates: start: 20101001, end: 20101104
  2. ACZ885 [Suspect]
     Dosage: 300 mg, UNK
     Route: 058
     Dates: start: 20101104, end: 20110215
  3. ACZ885 [Suspect]
     Dosage: NO TREATMENT
     Dates: start: 20101202
  4. PREDNISOLONE [Concomitant]
     Indication: JUVENILE ARTHRITIS
     Dosage: 20 mg, QD
     Route: 048
     Dates: start: 20101115
  5. FENTANYL [Concomitant]
     Indication: PAIN
     Dosage: UNK
     Route: 062
     Dates: start: 20101004
  6. DICLOFENAC [Concomitant]
     Indication: PAIN
     Dosage: 50 mg/h, BID (50 mg twice a day)
     Route: 054
  7. OMEPRAZOLE [Concomitant]
     Indication: ABDOMINAL DISCOMFORT
     Dosage: 20 mg, QD
     Route: 048
     Dates: start: 20100503
  8. METHOTREXATE [Concomitant]
     Indication: JUVENILE ARTHRITIS
     Dosage: 20 mg, Once a week
     Route: 048
     Dates: start: 20100910
  9. FOLIC ACID [Concomitant]
     Dosage: 5 mg, Once a week
     Route: 048
     Dates: start: 20060301

REACTIONS (13)
  - Juvenile idiopathic arthritis [Recovered/Resolved]
  - Pyrexia [Recovering/Resolving]
  - Chest pain [Recovering/Resolving]
  - Arthralgia [Recovered/Resolved]
  - Arthritis [Unknown]
  - Wound infection [Recovered/Resolved]
  - Wound [Recovered/Resolved]
  - Wound complication [Recovered/Resolved]
  - Swelling [Recovered/Resolved]
  - Inflammation [Recovered/Resolved]
  - Erythema [Recovered/Resolved]
  - Disease progression [Recovering/Resolving]
  - Drug ineffective [Recovering/Resolving]
